FAERS Safety Report 7413616-5 (Version None)
Quarter: 2011Q2

REPORT INFORMATION
  Report Type: 
  Country: None (occurrence: None)
  Receive Date: 20110413
  Receipt Date: 20110405
  Transmission Date: 20111010
  Serious: Yes (Other)
  Sender: FDA-Public Use
  Company Number: DE-AMGEN-KDL426494

PATIENT
  Age: 69 Year
  Sex: Female
  Weight: 55 kg

DRUGS (1)
  1. PROLIA [Suspect]
     Indication: OSTEOPOROSIS POSTMENOPAUSAL
     Dosage: UNK UNK, Q6MO
     Route: 058
     Dates: start: 20100716

REACTIONS (9)
  - RIB FRACTURE [None]
  - PRURITUS [None]
  - RASH PUSTULAR [None]
  - ABDOMINAL PAIN UPPER [None]
  - FATIGUE [None]
  - BLISTER [None]
  - EYELID OEDEMA [None]
  - ARTHRALGIA [None]
  - ABNORMAL FAECES [None]
